FAERS Safety Report 6990226-5 (Version None)
Quarter: 2010Q3

REPORT INFORMATION
  Report Type: 
  Country: None (occurrence: None)
  Receive Date: 20100916
  Receipt Date: 20100525
  Transmission Date: 20110219
  Serious: Yes (Life-Threatening, Hospitalization, Other)
  Sender: FDA-Public Use
  Company Number: DE-PFIZER INC-2010051935

PATIENT
  Sex: Male

DRUGS (3)
  1. LYRICA [Suspect]
     Indication: DEPRESSION
     Dosage: 150 MG, DAILY
     Route: 048
     Dates: start: 20100301, end: 20100316
  2. DIAZEPAM [Concomitant]
     Dosage: 10 MG, DAILY
     Dates: start: 20100313, end: 20100318
  3. DOXEPIN [Concomitant]
     Dosage: 200 MG, DAILY AS NEEDED
     Dates: start: 20100313

REACTIONS (1)
  - TOXIC EPIDERMAL NECROLYSIS [None]
